FAERS Safety Report 10350908 (Version 1)
Quarter: 2014Q3

REPORT INFORMATION
  Report Type: Spontaneous
  Country: US (occurrence: US)
  Receive Date: 20140730
  Receipt Date: 20140730
  Transmission Date: 20150326
  Serious: No
  Sender: FDA-Public Use
  Company Number: US-PFIZER INC-2014210176

PATIENT
  Age: 37 Year
  Sex: Male

DRUGS (3)
  1. VYVANSE [Suspect]
     Active Substance: LISDEXAMFETAMINE DIMESYLATE
     Dosage: UNK
  2. PRISTIQ EXTENDED RELEASE [Suspect]
     Active Substance: DESVENLAFAXINE SUCCINATE
     Dosage: 75 MG, (1 AND 1/2, 50 MG) DAILY
     Route: 048
  3. ABILIFY [Suspect]
     Active Substance: ARIPIPRAZOLE
     Dosage: UNK

REACTIONS (1)
  - Drug hypersensitivity [Unknown]
